FAERS Safety Report 11911576 (Version 10)
Quarter: 2017Q1

REPORT INFORMATION
  Report Type: Report from Study
  Country: CA (occurrence: CA)
  Receive Date: 20160112
  Receipt Date: 20170222
  Transmission Date: 20170428
  Serious: Yes (Other)
  Sender: FDA-Public Use
  Company Number: PHHY2015CA136395

PATIENT
  Age: 29 Year
  Sex: Female

DRUGS (14)
  1. METHOTREXATE. [Concomitant]
     Active Substance: METHOTREXATE
     Indication: PRODUCT USED FOR UNKNOWN INDICATION
     Route: 065
  2. COSENTYX [Suspect]
     Active Substance: SECUKINUMAB
     Indication: PSORIASIS
     Dosage: 300 MG, QMO
     Route: 058
     Dates: start: 20151119
  3. COSENTYX [Suspect]
     Active Substance: SECUKINUMAB
     Dosage: UNK
     Route: 058
     Dates: start: 201611
  4. NEORAL [Concomitant]
     Active Substance: CYCLOSPORINE
     Indication: PSORIASIS
     Route: 065
     Dates: start: 2003
  5. COSENTYX [Suspect]
     Active Substance: SECUKINUMAB
     Dosage: UNK
     Route: 058
     Dates: start: 20160922
  6. COSENTYX [Suspect]
     Active Substance: SECUKINUMAB
     Dosage: UNK
     Route: 058
     Dates: start: 20170119
  7. ENBREL [Concomitant]
     Active Substance: ETANERCEPT
     Indication: PRODUCT USED FOR UNKNOWN INDICATION
     Route: 065
  8. REMICADE [Concomitant]
     Active Substance: INFLIXIMAB
     Indication: PRODUCT USED FOR UNKNOWN INDICATION
     Route: 065
  9. CALCIPOTRIENE AND BETAMETHASONE DIPROPIONATE [Concomitant]
     Active Substance: BETAMETHASONE DIPROPIONATE\CALCIPOTRIENE
     Indication: PRODUCT USED FOR UNKNOWN INDICATION
     Route: 065
  10. HUMIRA [Concomitant]
     Active Substance: ADALIMUMAB
     Indication: PRODUCT USED FOR UNKNOWN INDICATION
     Route: 065
  11. PSORALEN [Concomitant]
     Active Substance: PSORALEN
     Indication: PRODUCT USED FOR UNKNOWN INDICATION
     Route: 065
  12. STELARA [Concomitant]
     Active Substance: USTEKINUMAB
     Indication: PRODUCT USED FOR UNKNOWN INDICATION
     Route: 065
  13. COSENTYX [Suspect]
     Active Substance: SECUKINUMAB
     Dosage: 150 MG, UNK
     Route: 058
     Dates: start: 2015, end: 2015
  14. CICLOSPORIN [Suspect]
     Active Substance: CYCLOSPORINE
     Indication: PRODUCT USED FOR UNKNOWN INDICATION
     Route: 065

REACTIONS (15)
  - Streptococcal infection [Unknown]
  - Secretion discharge [Unknown]
  - Sneezing [Unknown]
  - Nasopharyngitis [Not Recovered/Not Resolved]
  - Lymphadenopathy [Unknown]
  - Genital cyst [Not Recovered/Not Resolved]
  - Tongue discolouration [Unknown]
  - Drug ineffective [Unknown]
  - Oropharyngeal pain [Unknown]
  - Skin exfoliation [Unknown]
  - Pain [Unknown]
  - Sinusitis [Not Recovered/Not Resolved]
  - Oral candidiasis [Unknown]
  - Psoriasis [Unknown]
  - Dysphonia [Unknown]

NARRATIVE: CASE EVENT DATE: 201512
